FAERS Safety Report 9097248 (Version 1)
Quarter: 2013Q1

REPORT INFORMATION
  Report Type: Spontaneous
  Country: CA (occurrence: CA)
  Receive Date: 20130212
  Receipt Date: 20130212
  Transmission Date: 20140127
  Serious: Yes (Other)
  Sender: FDA-Public Use
  Company Number: PHHY2013CA011868

PATIENT
  Sex: 0

DRUGS (17)
  1. GLEEVEC [Suspect]
     Dosage: 400 MG, QD
     Route: 048
  2. CYTARABINE [Suspect]
     Dosage: UNK UKN, UNK
     Route: 037
  3. DOXORUBICIN [Suspect]
     Dosage: 30 MG/M2, UNK
     Route: 042
  4. LIPOSOMAL DOXORUBICIN HYDROCHLORIDE [Suspect]
  5. HYDROCORTISONE [Suspect]
     Dosage: UNK UKN, UNK
     Route: 037
  6. L-ASPARAGINASE [Suspect]
     Route: 030
  7. LEUCOVORIN CALCIUM [Suspect]
     Dosage: UNK UKN, UNK
  8. METHOTREXATE [Suspect]
     Dosage: UNK UKN, UNK
     Route: 037
  9. METHOTREXATE [Suspect]
     Dosage: 400 MG/M2, UNK
     Route: 042
  10. PREDNISONE [Suspect]
     Dosage: 10 MG, QID
     Route: 048
  11. VINCRISTINE SULFATE [Suspect]
     Dosage: 2 MG, UNK
     Route: 042
  12. ALENDRONATE [Concomitant]
  13. CALCIUM +VIT D [Concomitant]
  14. FLUCONAZOLE [Concomitant]
  15. PENTAMIDINE ISETHIONATE [Concomitant]
  16. RISEDRONATE SODIUM [Concomitant]
  17. SULFAMETHOXAZOLE AND TRIMETHOPRIM [Concomitant]

REACTIONS (1)
  - Myopathy [Unknown]
